FAERS Safety Report 20644915 (Version 4)
Quarter: 2022Q4

REPORT INFORMATION
  Report Type: Spontaneous
  Country: US (occurrence: US)
  Receive Date: 20220328
  Receipt Date: 20221228
  Transmission Date: 20230113
  Serious: Yes (Other)
  Sender: FDA-Public Use
  Company Number: US-PFIZER INC-202101696791

PATIENT
  Age: 45 Year
  Sex: Female

DRUGS (2)
  1. XELJANZ XR [Suspect]
     Active Substance: TOFACITINIB CITRATE
     Dosage: 11 MG
     Dates: start: 20200914
  2. TIZANIDINE [Suspect]
     Active Substance: TIZANIDINE
     Dosage: UNK
     Dates: start: 202206

REACTIONS (10)
  - Hallucination [Unknown]
  - Pain [Unknown]
  - Sensitivity to weather change [Unknown]
  - Fall [Unknown]
  - Somnambulism [Unknown]
  - Product dose omission issue [Unknown]
  - Peripheral swelling [Unknown]
  - Feeling hot [Unknown]
  - Pain in extremity [Recovered/Resolved]
  - Neck pain [Recovered/Resolved]

NARRATIVE: CASE EVENT DATE: 20220101
